FAERS Safety Report 11927167 (Version 4)
Quarter: 2016Q1

REPORT INFORMATION
  Report Type: Spontaneous
  Country: JP (occurrence: JP)
  Receive Date: 20160119
  Receipt Date: 20160304
  Transmission Date: 20160526
  Serious: No
  Sender: FDA-Public Use
  Company Number: PHHY2016JP005555

PATIENT

DRUGS (3)
  1. IMURAN [Suspect]
     Active Substance: AZATHIOPRINE
     Indication: FOETAL EXPOSURE DURING PREGNANCY
     Route: 064
  2. SPANIDIN [Suspect]
     Active Substance: GUSPERIMUS TRIHYDROCHLORIDE
     Indication: FOETAL EXPOSURE DURING PREGNANCY
     Route: 064
  3. NEORAL [Suspect]
     Active Substance: CYCLOSPORINE
     Indication: FOETAL EXPOSURE DURING PREGNANCY
     Route: 064

REACTIONS (1)
  - Foetal exposure during pregnancy [Unknown]
